FAERS Safety Report 4962455-3 (Version None)
Quarter: 2006Q2

REPORT INFORMATION
  Report Type: 
  Country: None (occurrence: None)
  Receive Date: 20060403
  Receipt Date: 20060403
  Transmission Date: 20061013
  Serious: No
  Sender: FDA-Public Use
  Company Number: None

PATIENT
  Sex: Male
  Weight: 63.5036 kg

DRUGS (1)
  1. METHYLENE BLUE , 1% (10 MG/ML), AMERICAN REGENT [Suspect]
     Indication: BIOPSY LYMPH GLAND
     Dosage: ONCE INTRADERM
     Route: 023
     Dates: start: 20060303

REACTIONS (3)
  - OPEN WOUND [None]
  - PURULENCE [None]
  - WOUND DRAINAGE [None]
